FAERS Safety Report 8598933-8 (Version None)
Quarter: 2012Q3

REPORT INFORMATION
  Report Type: 
  Country: None (occurrence: None)
  Receive Date: 20120816
  Receipt Date: 19940516
  Transmission Date: 20120928
  Serious: Yes (Hospitalization)
  Sender: FDA-Public Use
  Company Number: US-ROCHE-1101545

PATIENT
  Age: 45 Year
  Sex: Male

DRUGS (12)
  1. ASPIRIN [Concomitant]
  2. HEPARIN [Concomitant]
     Route: 040
  3. NITRO DRIP [Concomitant]
  4. ACTIVASE [Suspect]
  5. ACTIVASE [Suspect]
     Indication: MYOCARDIAL INFARCTION
     Route: 040
  6. LOPRESSOR [Concomitant]
     Route: 042
  7. MORPHINE SULFATE [Concomitant]
     Route: 042
  8. PROCARDIA [Concomitant]
     Route: 060
  9. ATIVAN [Concomitant]
     Route: 042
  10. HEPARIN [Concomitant]
     Route: 041
  11. LOPRESSOR [Concomitant]
     Route: 048
  12. NITRO DRIP [Concomitant]

REACTIONS (2)
  - BLOOD PRESSURE INCREASED [None]
  - TACHYCARDIA [None]
